FAERS Safety Report 5288042-8 (Version None)
Quarter: 2007Q2

REPORT INFORMATION
  Report Type: 
  Country: None (occurrence: None)
  Receive Date: 20070405
  Receipt Date: 20070328
  Transmission Date: 20071010
  Serious: Yes (Other)
  Sender: FDA-Public Use
  Company Number: FR-BRISTOL-MYERS SQUIBB COMPANY-13712310

PATIENT
  Age: 82 Year
  Sex: Female

DRUGS (8)
  1. VASTEN [Suspect]
     Indication: HYPERCHOLESTEROLAEMIA
     Dosage: INITIAL DOSAGE WAS 10MG FROM 1991-13-OCT-2004
     Route: 048
     Dates: start: 19910201
  2. LEVOTHYROXINE SODIUM [Concomitant]
     Indication: HYPOTHYROIDISM
     Route: 048
     Dates: start: 19910201
  3. IRBESARTAN [Concomitant]
     Indication: HYPERTENSION
     Dates: start: 20040101
  4. VASTAREL [Concomitant]
     Dates: start: 19870101
  5. ISOPTIN [Concomitant]
     Indication: CARDIAC DISORDER
     Route: 048
     Dates: start: 19910101
  6. DEBRIDAT [Concomitant]
     Indication: GASTROINTESTINAL DISORDER
     Route: 048
     Dates: start: 19870101
  7. CHONDROITIN SULFATE [Concomitant]
     Indication: OSTEOARTHRITIS
     Route: 048
     Dates: start: 19850101
  8. TEMESTA [Concomitant]
     Indication: SLEEP DISORDER
     Route: 048

REACTIONS (5)
  - CORNEAL DISORDER [None]
  - CORNEAL EPITHELIUM DEFECT [None]
  - DRY EYE [None]
  - VISUAL ACUITY REDUCED [None]
  - VISUAL DISTURBANCE [None]
